FAERS Safety Report 12334944 (Version 9)
Quarter: 2017Q1

REPORT INFORMATION
  Report Type: Report from Study
  Country: IL (occurrence: IL)
  Receive Date: 20160504
  Receipt Date: 20170324
  Transmission Date: 20170428
  Serious: Yes (Other)
  Sender: FDA-Public Use
  Company Number: IL-INCYTE CORPORATION-2016IN001423

PATIENT
  Age: 68 Year
  Sex: Female
  Weight: 64 kg

DRUGS (4)
  1. JAKAVI [Suspect]
     Active Substance: RUXOLITINIB
     Indication: POLYCYTHAEMIA VERA
     Dosage: UNK
     Route: 048
     Dates: start: 2014
  2. JAKAVI [Suspect]
     Active Substance: RUXOLITINIB
     Dosage: 5 MG, BID
     Route: 048
     Dates: start: 20151229, end: 20160127
  3. JAKAVI [Suspect]
     Active Substance: RUXOLITINIB
     Dosage: 15 MG, QD
     Route: 048
     Dates: start: 20160503, end: 20160603
  4. JAKAVI [Suspect]
     Active Substance: RUXOLITINIB
     Dosage: 5 MG, BID (10 MG DAILY)
     Route: 048
     Dates: start: 2016

REACTIONS (23)
  - Pyrexia [Recovered/Resolved]
  - Bone pain [Recovering/Resolving]
  - Nausea [Recovered/Resolved]
  - Haemoglobin decreased [Unknown]
  - Peripheral swelling [Not Recovered/Not Resolved]
  - Swelling face [Recovered/Resolved]
  - Flatulence [Not Recovered/Not Resolved]
  - Headache [Recovering/Resolving]
  - Alopecia [Not Recovered/Not Resolved]
  - Pyrexia [Recovering/Resolving]
  - Joint swelling [Recovered/Resolved]
  - Amnesia [Not Recovered/Not Resolved]
  - Abdominal pain upper [Not Recovered/Not Resolved]
  - Malaise [Unknown]
  - Hypertension [Recovering/Resolving]
  - Splenomegaly [Unknown]
  - Epistaxis [Recovered/Resolved]
  - Influenza [Recovering/Resolving]
  - Tremor [Not Recovered/Not Resolved]
  - Insomnia [Recovering/Resolving]
  - Blood triglycerides increased [Unknown]
  - Asthenia [Recovering/Resolving]
  - Haematocrit decreased [Unknown]

NARRATIVE: CASE EVENT DATE: 20160127
